FAERS Safety Report 13951159 (Version 1)
Quarter: 2017Q3

REPORT INFORMATION
  Report Type: Report from Study
  Country: US (occurrence: US)
  Receive Date: 20170908
  Receipt Date: 20170908
  Transmission Date: 20171128
  Serious: Yes (Other)
  Sender: FDA-Public Use
  Company Number: US-JAZZ-2017-US-008975

PATIENT
  Age: 55 Year
  Sex: Female

DRUGS (4)
  1. XYREM [Suspect]
     Active Substance: SODIUM OXYBATE
     Indication: CATAPLEXY
     Dosage: UNKNOWN INCREASED DOSE
     Dates: start: 201707
  2. TYLENOL [Suspect]
     Active Substance: ACETAMINOPHEN
     Indication: PRODUCT USED FOR UNKNOWN INDICATION
  3. XYREM [Suspect]
     Active Substance: SODIUM OXYBATE
     Indication: NARCOLEPSY
     Dosage: 3 G, BID
     Route: 048
     Dates: start: 20170703, end: 201707
  4. MOTRIN [Suspect]
     Active Substance: IBUPROFEN
     Indication: PRODUCT USED FOR UNKNOWN INDICATION

REACTIONS (20)
  - Joint swelling [Recovered/Resolved]
  - Fluid retention [Recovered/Resolved]
  - Sleep apnoea syndrome [Not Recovered/Not Resolved]
  - Haemorrhage [Recovered/Resolved]
  - Respiration abnormal [Unknown]
  - Fluid overload [Not Recovered/Not Resolved]
  - Fall [Recovered/Resolved]
  - Palpitations [Unknown]
  - Frequent bowel movements [Unknown]
  - Somnolence [Recovered/Resolved]
  - Dry throat [Unknown]
  - Lip injury [Recovered/Resolved]
  - Stress [Recovered/Resolved]
  - Abdominal discomfort [Unknown]
  - Joint injury [Recovered/Resolved]
  - Drug ineffective [Unknown]
  - Disability [Not Recovered/Not Resolved]
  - Fibromyalgia [Recovering/Resolving]
  - Dizziness [Unknown]
  - Wrong technique in product usage process [Unknown]

NARRATIVE: CASE EVENT DATE: 2017
